FAERS Safety Report 14420591 (Version 1)
Quarter: 2018Q1

REPORT INFORMATION
  Report Type: Spontaneous
  Country: US (occurrence: US)
  Receive Date: 20180122
  Receipt Date: 20180122
  Transmission Date: 20180509
  Serious: No
  Sender: FDA-Public Use
  Company Number: US-ROCHE-1978109

PATIENT
  Sex: Female

DRUGS (5)
  1. ORENCIA [Concomitant]
     Active Substance: ABATACEPT
  2. REMICADE [Concomitant]
     Active Substance: INFLIXIMAB
  3. RITUXAN [Suspect]
     Active Substance: RITUXIMAB
     Indication: PRODUCT USED FOR UNKNOWN INDICATION
     Route: 065
     Dates: end: 201612
  4. HUMIRA [Concomitant]
     Active Substance: ADALIMUMAB
  5. ENBREL [Concomitant]
     Active Substance: ETANERCEPT

REACTIONS (1)
  - Urinary tract obstruction [Unknown]
